FAERS Safety Report 9128173 (Version 2)
Quarter: 2013Q2

REPORT INFORMATION
  Report Type: Spontaneous
  Country: US (occurrence: US)
  Receive Date: 20130228
  Receipt Date: 20130429
  Transmission Date: 20140414
  Serious: Yes (Life-Threatening)
  Sender: FDA-Public Use
  Company Number: US-ELI_LILLY_AND_COMPANY-US201302008006

PATIENT
  Age: 70 Year
  Sex: Female
  Weight: 69.84 kg

DRUGS (3)
  1. EVISTA [Suspect]
     Indication: OSTEOPOROSIS
     Dosage: 60MG, DAILY
     Route: 048
     Dates: start: 200110, end: 20121225
  2. DIOVAN [Concomitant]
     Indication: HYPERTENSION
     Dosage: 160MG/DAILY
     Route: 048
  3. METOPROLOL [Concomitant]
     Indication: HYPERTENSION
     Dosage: 25MG/DAILY
     Route: 048

REACTIONS (1)
  - Myocardial infarction [Recovering/Resolving]
